FAERS Safety Report 15037154 (Version 1)
Quarter: 2018Q2

REPORT INFORMATION
  Report Type: Spontaneous
  Country: DE (occurrence: DE)
  Receive Date: 20180620
  Receipt Date: 20180620
  Transmission Date: 20180711
  Serious: Yes (Death)
  Sender: FDA-Public Use
  Company Number: DE-PFIZER INC-2018249773

PATIENT
  Age: 80 Year
  Sex: Female

DRUGS (16)
  1. METHOTREXATE SODIUM. [Suspect]
     Active Substance: METHOTREXATE SODIUM
     Indication: RHEUMATIC DISORDER
     Dosage: 15 MG, 1X/DAY
     Dates: start: 20180202, end: 20180208
  2. BISOPROLOL [Concomitant]
     Active Substance: BISOPROLOL
     Dosage: 2.5 MG, 1X/DAY
  3. LAXOBERAL [Concomitant]
     Active Substance: SODIUM PICOSULFATE
     Dosage: 10 GTT, AS NEEDED
  4. CARDIODORON B [Concomitant]
     Dosage: 10GTTEINNAHME BEI BEDARF
  5. FOLIC ACID. [Concomitant]
     Active Substance: FOLIC ACID
     Dosage: 10 MG, 1X/DAY
  6. L-THYROXIN [Concomitant]
     Active Substance: LEVOTHYROXINE SODIUM
     Dosage: 75 UG, 1X/DAY
  7. PREDNISOLONE. [Concomitant]
     Active Substance: PREDNISOLONE
     Dosage: 5MG 1X/DAY
  8. SPASMOLYT [Concomitant]
     Dosage: 10 MG, UNK
  9. NOVALGIN [Concomitant]
     Dosage: 20 GTT, AS NEEDED
  10. MACROGOL [Concomitant]
     Active Substance: POLYETHYLENE GLYCOLS
     Dosage: UNK UNK, AS NEEDED
  11. ZOLPIDEM [Concomitant]
     Active Substance: ZOLPIDEM\ZOLPIDEM TARTRATE
     Dosage: 5 MG, AS NEEDED
  12. ELIQUIS [Concomitant]
     Active Substance: APIXABAN
     Dosage: 5MG
  13. MAGNEROT [Concomitant]
     Active Substance: MAGNESIUM
     Dosage: 1 DF, 1X/DAY
  14. PARACETAMOL [Concomitant]
     Active Substance: ACETAMINOPHEN
     Dosage: 500 MG, AS NEEDED
  15. PANTOZOL [Concomitant]
     Active Substance: PANTOPRAZOLE SODIUM
     Dosage: 20 MG, 1X/DAY
  16. VOMEX A [Concomitant]
     Active Substance: DIMENHYDRINATE
     Dosage: UNK UNK, AS NEEDED

REACTIONS (2)
  - Overdose [Fatal]
  - Death [Fatal]

NARRATIVE: CASE EVENT DATE: 20180208
